FAERS Safety Report 21356351 (Version 4)
Quarter: 2023Q1

REPORT INFORMATION
  Report Type: Report from Study
  Country: US (occurrence: US)
  Receive Date: 20220920
  Receipt Date: 20230218
  Transmission Date: 20230417
  Serious: Yes (Hospitalization, Other)
  Sender: FDA-Public Use
  Company Number: US-ABBVIE-4127235

PATIENT
  Sex: Female
  Weight: 70.76 kg

DRUGS (8)
  1. RINVOQ [Suspect]
     Active Substance: UPADACITINIB
     Indication: Rheumatoid arthritis
     Route: 048
     Dates: start: 20220920
  2. RINVOQ [Suspect]
     Active Substance: UPADACITINIB
     Indication: Rheumatoid arthritis
     Route: 048
     Dates: start: 2021, end: 202108
  3. SYNTHROID [Concomitant]
     Active Substance: LEVOTHYROXINE SODIUM
     Indication: Hypothyroidism
  4. Prednisone 5 Milligram [Concomitant]
     Indication: Rheumatoid arthritis
  5. Magnesium 400 Milligram [Concomitant]
     Indication: Product used for unknown indication
  6. Vitamin d 1000 Milligram [Concomitant]
     Indication: Product used for unknown indication
  7. FLUVOXAMINE [Concomitant]
     Active Substance: FLUVOXAMINE
     Indication: Anxiety
     Dosage: 37.5 MILLIGRAM
  8. FLUVOXAMINE [Concomitant]
     Active Substance: FLUVOXAMINE
     Indication: Anxiety

REACTIONS (19)
  - Chondropathy [Recovered/Resolved]
  - Infusion [Unknown]
  - Pain [Unknown]
  - Joint dislocation [Recovered/Resolved]
  - Unevaluable event [Unknown]
  - Hip fracture [Unknown]
  - Illness [Recovered/Resolved]
  - Syncope [Recovered/Resolved]
  - Arthralgia [Recovered/Resolved]
  - Heart rate decreased [Recovered/Resolved]
  - Groin pain [Recovered/Resolved]
  - Hypertension [Recovered/Resolved]
  - Hypotension [Recovered/Resolved]
  - Tinnitus [Recovered/Resolved]
  - Postoperative wound complication [Recovered/Resolved]
  - Arthralgia [Recovered/Resolved]
  - Hyperhidrosis [Recovered/Resolved]
  - Asthenia [Unknown]
  - Pain in extremity [Unknown]

NARRATIVE: CASE EVENT DATE: 20220101
